FAERS Safety Report 24672019 (Version 1)
Quarter: 2024Q4

REPORT INFORMATION
  Report Type: Spontaneous
  Country: JP (occurrence: JP)
  Receive Date: 20241127
  Receipt Date: 20241127
  Transmission Date: 20250115
  Serious: Yes (Other)
  Sender: NOVARTIS
  Company Number: JP-002147023-NVSJ2024JP013782

PATIENT
  Sex: Female

DRUGS (1)
  1. COSENTYX [Suspect]
     Active Substance: SECUKINUMAB
     Indication: Product used for unknown indication
     Dosage: UNK, QW
     Route: 058
     Dates: start: 20241002, end: 20241030

REACTIONS (7)
  - Anal abscess [Unknown]
  - Proctalgia [Unknown]
  - Anal erythema [Unknown]
  - Vulvovaginal erythema [Unknown]
  - Dandruff [Unknown]
  - Scab [Unknown]
  - Erythema [Unknown]
